FAERS Safety Report 9306297 (Version 1)
Quarter: 2013Q2

REPORT INFORMATION
  Report Type: Spontaneous
  Country: US (occurrence: None)
  Receive Date: 20130516
  Receipt Date: 20130516
  Transmission Date: 20140414
  Serious: Yes (Other)
  Sender: FDA-Public Use
  Company Number: 2013PROUSA02803

PATIENT
  Age: 89 Year
  Sex: Male

DRUGS (1)
  1. PROVENGE [Suspect]
     Indication: PROSTATE CANCER METASTATIC
     Dosage: 250ML SINGLE INTRAVENOUS
     Route: 042
     Dates: start: 20130412, end: 20130412

REACTIONS (1)
  - Hospice care [None]
